FAERS Safety Report 4560881-8 (Version None)
Quarter: 2005Q1

REPORT INFORMATION
  Report Type: 
  Country: None (occurrence: None)
  Receive Date: 20050121
  Receipt Date: 20050107
  Transmission Date: 20050727
  Serious: Yes (Death)
  Sender: FDA-Public Use
  Company Number: 2004AP06072

PATIENT
  Age: 81 Year
  Sex: Male

DRUGS (24)
  1. IRESSA [Suspect]
     Indication: NON-SMALL CELL LUNG CANCER
     Dosage: 250 MG DAILY PO
     Route: 048
     Dates: start: 20041112
  2. OXYCONTIN [Concomitant]
  3. DEPAS [Concomitant]
  4. NOVAMIN [Concomitant]
  5. NU LOTAN [Concomitant]
  6. SENNOSIDE [Concomitant]
  7. NAUZELIN [Concomitant]
  8. NORVASC [Concomitant]
  9. ROCALTROL [Concomitant]
  10. LECICARBON [Concomitant]
  11. MOHRUS TAPE [Concomitant]
  12. OPSO DAINIPPON [Concomitant]
  13. LAXOBERON [Concomitant]
  14. AMOBAN [Concomitant]
  15. PREDNISOLONE [Concomitant]
  16. UNIPHYL [Concomitant]
  17. PHYSIO [Concomitant]
  18. VITAMEDIN S [Concomitant]
  19. PRIMPERAN INJ [Concomitant]
  20. ASCORBIC ACID [Concomitant]
  21. GASTER D [Concomitant]
  22. MORPHINE HYDROCHLORIDE [Concomitant]
  23. ANAPEINE [Concomitant]
  24. DOCETAXEL [Concomitant]

REACTIONS (6)
  - BRADYCARDIA [None]
  - CARDIAC FAILURE ACUTE [None]
  - CONTUSION [None]
  - FALL [None]
  - RESPIRATORY ARREST [None]
  - WOUND [None]
